FAERS Safety Report 11557841 (Version 2)
Quarter: 2015Q4

REPORT INFORMATION
  Report Type: Report from Study
  Country: CA (occurrence: CA)
  Receive Date: 20150927
  Receipt Date: 20151013
  Transmission Date: 20160304
  Serious: Yes (Hospitalization, Other)
  Sender: FDA-Public Use
  Company Number: CA-ROCHE-1237087

PATIENT
  Age: 41 Year
  Sex: Female
  Weight: 53.1 kg

DRUGS (5)
  1. ACTEMRA [Suspect]
     Active Substance: TOCILIZUMAB
     Indication: RHEUMATOID ARTHRITIS
     Route: 042
     Dates: start: 20120808, end: 201509
  2. METHOTREXATE [Concomitant]
     Active Substance: METHOTREXATE
     Dosage: 25MG/ML
     Route: 058
  3. FOLIC ACID. [Concomitant]
     Active Substance: FOLIC ACID
     Route: 048
  4. NAPROXEN. [Concomitant]
     Active Substance: NAPROXEN
     Dosage: PRN
     Route: 048
  5. PARIET [Concomitant]
     Active Substance: RABEPRAZOLE SODIUM
     Route: 048

REACTIONS (8)
  - Motor dysfunction [Not Recovered/Not Resolved]
  - Tendon pain [Unknown]
  - Treatment failure [Not Recovered/Not Resolved]
  - Rheumatoid arthritis [Unknown]
  - Nerve injury [Unknown]
  - Lower respiratory tract infection [Recovered/Resolved]
  - Sjogren^s syndrome [Not Recovered/Not Resolved]
  - C-reactive protein abnormal [Unknown]

NARRATIVE: CASE EVENT DATE: 201305
